FAERS Safety Report 14986956 (Version 1)
Quarter: 2018Q2

REPORT INFORMATION
  Report Type: Spontaneous
  Country: DE (occurrence: DE)
  Receive Date: 20180608
  Receipt Date: 20180608
  Transmission Date: 20180711
  Serious: Yes (Hospitalization)
  Sender: FDA-Public Use
  Company Number: DE-TEVA-2018-DE-902625

PATIENT
  Age: 72 Year
  Sex: Female
  Weight: 73 kg

DRUGS (4)
  1. PANTOPRAZOL [Concomitant]
     Active Substance: PANTOPRAZOLE SODIUM
     Dosage: 20 MILLIGRAM DAILY;  TAG, 1-0-0-0
     Route: 048
  2. PHENPROCOUMON [Concomitant]
     Active Substance: PHENPROCOUMON
     Route: 048
  3. BISOPROLOL [Suspect]
     Active Substance: BISOPROLOL
     Dosage: 5 MILLIGRAM DAILY;  1-0-0-0
     Route: 048
  4. ALDACTONE [Concomitant]
     Active Substance: SPIRONOLACTONE
     Route: 065

REACTIONS (3)
  - Weight increased [Unknown]
  - Oliguria [Unknown]
  - Dyspnoea [Unknown]

NARRATIVE: CASE EVENT DATE: 20151010
